FAERS Safety Report 8286594 (Version 3)
Quarter: 2013Q2

REPORT INFORMATION
  Report Type: Spontaneous
  Country: US (occurrence: None)
  Receive Date: 20111122
  Receipt Date: 20120703
  Transmission Date: 20140414
  Serious: No
  Sender: FDA-Public Use
  Company Number: PHHY2011US61934

PATIENT
  Age: 57 Year
  Sex: Female

DRUGS (2)
  1. GILENYA [Suspect]
     Indication: MULTIPLE SCLEROSIS
     Dosage: 0.5 MG, QD, ORAL
     Route: 048
     Dates: start: 201105
  2. GABAPENTIN (GABAPENTIN) [Concomitant]

REACTIONS (6)
  - LARYNGITIS [None]
  - PRURITUS [None]
  - OROPHARYNGEAL PAIN [None]
  - EAR PAIN [None]
  - MALAISE [None]
  - SKIN DISCOLOURATION [None]
